FAERS Safety Report 8271359-2 (Version None)
Quarter: 2012Q2

REPORT INFORMATION
  Report Type: 
  Country: None (occurrence: None)
  Receive Date: 20120410
  Receipt Date: 20120119
  Transmission Date: 20120825
  Serious: No
  Sender: FDA-Public Use
  Company Number: US-NOVEN-12US003959

PATIENT
  Sex: Female

DRUGS (1)
  1. FENTANYL CITRATE [Suspect]
     Indication: PAIN
     Dosage: 25 UG/HR, UNK
     Route: 062
     Dates: start: 20111201, end: 20111201

REACTIONS (3)
  - CONSTIPATION [None]
  - HYPERHIDROSIS [None]
  - HEART RATE INCREASED [None]
